FAERS Safety Report 10618022 (Version 1)
Quarter: 2014Q4

REPORT INFORMATION
  Report Type: Spontaneous
  Country: US (occurrence: US)
  Receive Date: 20141202
  Receipt Date: 20141202
  Transmission Date: 20150529
  Serious: Yes (Other)
  Sender: FDA-Public Use
  Company Number: US-CIPLA LTD.-2014US02252

PATIENT

DRUGS (3)
  1. IRINOTECAN [Suspect]
     Active Substance: IRINOTECAN
     Indication: GLIOBLASTOMA
     Dosage: 125 MG/M2 INTRAVENOUSLY EVERY 2 WEEKS
  2. CT 322 [Suspect]
     Active Substance: PEGDINETANIB
     Indication: GLIOBLASTOMA
     Dosage: 1 MG/KG WEEKLY
     Route: 042
  3. IRINOTECAN [Suspect]
     Active Substance: IRINOTECAN
     Dosage: 340 MG/M2 EVERY 2 WEEKS FOR PATIENTS RECEIVING ENZYME INDUCING ANTI EPILEPTIC DRUGSUNK

REACTIONS (1)
  - Hypertension [Unknown]
